FAERS Safety Report 5940266-X (Version None)
Quarter: 2008Q4

REPORT INFORMATION
  Report Type: 
  Country: None (occurrence: None)
  Receive Date: 20081030
  Receipt Date: 20081015
  Transmission Date: 20090506
  Serious: Yes (Disabling)
  Sender: FDA-Public Use
  Company Number: FABR-1000451

PATIENT
  Age: 11 Year
  Sex: Male
  Weight: 32.6 kg

DRUGS (1)
  1. FABRAZYME [Suspect]
     Indication: FABRY'S DISEASE
     Dosage: 1 MG/KG, Q2W, INTRAVENOUS
     Route: 042
     Dates: start: 20041019

REACTIONS (3)
  - DEAFNESS [None]
  - DEAFNESS NEUROSENSORY [None]
  - TINNITUS [None]
